FAERS Safety Report 11677519 (Version 1)
Quarter: 2015Q4

REPORT INFORMATION
  Report Type: Spontaneous
  Country: CN (occurrence: CN)
  Receive Date: 20151028
  Receipt Date: 20151028
  Transmission Date: 20160304
  Serious: Yes (Death)
  Sender: FDA-Public Use
  Company Number: CN-BAYER-2015-445777

PATIENT
  Age: 84 Year

DRUGS (2)
  1. AVELOX [Suspect]
     Active Substance: MOXIFLOXACIN HYDROCHLORIDE
     Indication: INFECTION
     Dosage: UNK, QD
     Dates: start: 20151003, end: 20151008
  2. CIPROFLOXACIN. [Suspect]
     Active Substance: CIPROFLOXACIN
     Indication: BRONCHITIS CHRONIC
     Dosage: UNK

REACTIONS (4)
  - Vomiting [Fatal]
  - Mucous stools [None]
  - Condition aggravated [Fatal]
  - Feeding disorder [Fatal]

NARRATIVE: CASE EVENT DATE: 20151008
